FAERS Safety Report 6291680-7 (Version None)
Quarter: 2009Q3

REPORT INFORMATION
  Report Type: 
  Country: None (occurrence: None)
  Receive Date: 20090730
  Receipt Date: 20090730
  Transmission Date: 20100115
  Serious: Yes (Hospitalization)
  Sender: FDA-Public Use
  Company Number: None

PATIENT
  Age: 57 Year
  Sex: Female
  Weight: 68.0396 kg

DRUGS (12)
  1. LEVETIRACETAM [Suspect]
     Indication: COMPLEX PARTIAL SEIZURES
     Dosage: 1250 MG BID PO
     Route: 048
     Dates: start: 20090319, end: 20090320
  2. TRILEPTAL [Concomitant]
  3. TOPAMAX [Concomitant]
  4. FOXOMAX-D [Concomitant]
  5. AMLODIPINE [Concomitant]
  6. BENAZEPRIL HYDROCHLORIDE [Concomitant]
  7. CITRACAL PETITES [Concomitant]
  8. VIT D [Concomitant]
  9. CHOLECALCIFEROL [Concomitant]
  10. CITALOPRAM [Concomitant]
  11. CONJUGATED ESTROGENS [Concomitant]
  12. CENTRAVITE [Concomitant]

REACTIONS (2)
  - GRAND MAL CONVULSION [None]
  - URINARY RETENTION [None]
